FAERS Safety Report 8388689-6 (Version None)
Quarter: 2012Q2

REPORT INFORMATION
  Report Type: 
  Country: None (occurrence: None)
  Receive Date: 20120526
  Receipt Date: 20120423
  Transmission Date: 20120825
  Serious: Yes (Life-Threatening, Hospitalization, Other)
  Sender: FDA-Public Use
  Company Number: US-TEVA-334817USA

PATIENT
  Sex: Male
  Weight: 68.18 kg

DRUGS (4)
  1. FLUTICASONE PROPIONATE/SALMETEROL [Concomitant]
     Indication: CHRONIC OBSTRUCTIVE PULMONARY DISEASE
     Dosage: 250/50 MCG TWICE DAILY
     Dates: start: 20120101, end: 20120228
  2. BUDESONIDE [Suspect]
     Indication: CHRONIC OBSTRUCTIVE PULMONARY DISEASE
     Dosage: 360 MCG TWICE DAILY
     Dates: start: 20120301, end: 20120408
  3. PROAIR HFA [Suspect]
     Indication: CHRONIC OBSTRUCTIVE PULMONARY DISEASE
     Dates: start: 20120101
  4. NON TEVA STUDY DRUG [Suspect]
     Dosage: TWICE DAILY
     Dates: start: 20120327, end: 20120408

REACTIONS (2)
  - MYOCARDIAL INFARCTION [None]
  - ANGINA UNSTABLE [None]
